FAERS Safety Report 4773622-6 (Version None)
Quarter: 2005Q3

REPORT INFORMATION
  Report Type: 
  Country: None (occurrence: None)
  Receive Date: 20050914
  Receipt Date: 20050812
  Transmission Date: 20060218
  Serious: Yes (Other)
  Sender: FDA-Public Use
  Company Number: 414378

PATIENT
  Age: 81 Year
  Sex: Female

DRUGS (1)
  1. BONIVA [Suspect]
     Dosage: ORAL
     Route: 048
     Dates: start: 20050805

REACTIONS (3)
  - ILL-DEFINED DISORDER [None]
  - PHARYNGITIS [None]
  - PYREXIA [None]
